FAERS Safety Report 6418259-8 (Version None)
Quarter: 2009Q4

REPORT INFORMATION
  Report Type: 
  Country: None (occurrence: None)
  Receive Date: 20091028
  Receipt Date: 20091020
  Transmission Date: 20100525
  Serious: Yes (Other)
  Sender: FDA-Public Use
  Company Number: US-SANOFI-SYNTHELABO-A03200904888

PATIENT
  Sex: Female
  Weight: 47.6 kg

DRUGS (2)
  1. COREG [Concomitant]
     Indication: DRUG USE FOR UNKNOWN INDICATION
     Dosage: UNK
     Route: 065
  2. PLAVIX [Suspect]
     Indication: PERIPHERAL ARTERIAL OCCLUSIVE DISEASE
     Route: 048
     Dates: start: 20080101

REACTIONS (3)
  - GASTROINTESTINAL DISORDER [None]
  - MALAISE [None]
  - WEIGHT DECREASED [None]
